FAERS Safety Report 8157210-X (Version None)
Quarter: 2012Q1

REPORT INFORMATION
  Report Type: 
  Country: None (occurrence: None)
  Receive Date: 20120208
  Receipt Date: 20120125
  Transmission Date: 20120608
  Serious: Yes (Hospitalization)
  Sender: FDA-Public Use
  Company Number: 2012PROUSA00912

PATIENT
  Age: 66 Year
  Sex: Male
  Weight: 83.9 kg

DRUGS (14)
  1. CASODEX [Concomitant]
  2. PLAVIX [Concomitant]
  3. PROVENGE [Suspect]
     Indication: PROSTATE CANCER METASTATIC
     Dosage: 250 ML, SINGLE, INTRAVENOUS
     Route: 042
     Dates: start: 20111209, end: 20111209
  4. PROVENGE [Suspect]
     Indication: PROSTATE CANCER METASTATIC
     Dosage: 250 ML, SINGLE, INTRAVENOUS
     Route: 042
     Dates: start: 20120120, end: 20120120
  5. ISORDIL [Concomitant]
  6. ASPIRIN [Concomitant]
  7. AMBIEN [Concomitant]
  8. OMEPRAZOLE [Concomitant]
  9. REQUIP [Concomitant]
  10. ACTOS [Concomitant]
  11. HYDROLAZINE (HYDRALAZINE) [Concomitant]
  12. VENTOLIN [Concomitant]
  13. ZOCOR [Concomitant]
  14. THEO-DUR [Concomitant]

REACTIONS (2)
  - URINE ELECTROPHORESIS ABNORMAL [None]
  - CHRONIC OBSTRUCTIVE PULMONARY DISEASE [None]
